FAERS Safety Report 15556871 (Version 3)
Quarter: 2019Q1

REPORT INFORMATION
  Report Type: Report from Study
  Country: US (occurrence: US)
  Receive Date: 20181026
  Receipt Date: 20190128
  Transmission Date: 20190417
  Serious: Yes (Other)
  Sender: FDA-Public Use
  Company Number: US-JAZZ-2017-US-002410

PATIENT
  Sex: Female

DRUGS (19)
  1. XYREM [Suspect]
     Active Substance: SODIUM OXYBATE
     Dosage: 6 G, BID
     Route: 048
     Dates: start: 201702
  2. NYSTATIN. [Concomitant]
     Active Substance: NYSTATIN
  3. AMLODIPINE BESILATE [Concomitant]
     Active Substance: AMLODIPINE BESYLATE
  4. DICLOFENAC POTASSIUM. [Concomitant]
     Active Substance: DICLOFENAC POTASSIUM
  5. XYREM [Suspect]
     Active Substance: SODIUM OXYBATE
     Indication: INSOMNIA
     Dosage: DOSE ADJUSTMENT
     Route: 048
     Dates: start: 2005, end: 2017
  6. ACETYLSALICYLIC ACID [Concomitant]
     Active Substance: ASPIRIN
  7. LUNESTA [Concomitant]
     Active Substance: ESZOPICLONE
  8. OXYBUTYNIN. [Concomitant]
     Active Substance: OXYBUTYNIN CHLORIDE
  9. XYREM [Suspect]
     Active Substance: SODIUM OXYBATE
     Indication: SLEEP DISORDER
     Dosage: 0.75 G, BID
     Route: 048
     Dates: start: 200509, end: 2005
  10. ATORVASTATIN [Concomitant]
     Active Substance: ATORVASTATIN
  11. MYRBETRIQ [Concomitant]
     Active Substance: MIRABEGRON
  12. MELATONIN [Concomitant]
     Active Substance: MELATONIN
  13. METFORMIN HCL [Concomitant]
     Active Substance: METFORMIN HYDROCHLORIDE
  14. LORAZEPAM. [Concomitant]
     Active Substance: LORAZEPAM
  15. LEVOTHYROXINE. [Concomitant]
     Active Substance: LEVOTHYROXINE
  16. VESICARE [Concomitant]
     Active Substance: SOLIFENACIN SUCCINATE
  17. NIFEDIPINE. [Concomitant]
     Active Substance: NIFEDIPINE
  18. VITAMIN D3 [Concomitant]
     Active Substance: CHOLECALCIFEROL
  19. IBUPROFEN. [Concomitant]
     Active Substance: IBUPROFEN

REACTIONS (7)
  - Tachyphrenia [Unknown]
  - Muscle spasms [Unknown]
  - Rotator cuff syndrome [Unknown]
  - Condition aggravated [Unknown]
  - Burns second degree [Unknown]
  - Muscle injury [Not Recovered/Not Resolved]
  - Pain [Unknown]
